FAERS Safety Report 5273675-5 (Version None)
Quarter: 2007Q1

REPORT INFORMATION
  Report Type: 
  Country: None (occurrence: None)
  Receive Date: 20070323
  Receipt Date: 20070312
  Transmission Date: 20070707
  Serious: Yes (Hospitalization)
  Sender: FDA-Public Use
  Company Number: US-SANOFI-SYNTHELABO-A03200702057

PATIENT
  Age: 29 Year
  Sex: Female

DRUGS (1)
  1. AMBIEN [Suspect]
     Indication: INSOMNIA
     Route: 048
     Dates: start: 20031101, end: 20061014

REACTIONS (10)
  - ANXIETY [None]
  - DISTURBANCE IN ATTENTION [None]
  - DRUG DEPENDENCE [None]
  - GALLBLADDER DISORDER [None]
  - INCOHERENT [None]
  - LOSS OF CONSCIOUSNESS [None]
  - RETROGRADE AMNESIA [None]
  - SLEEP TALKING [None]
  - SLEEP WALKING [None]
  - THERMAL BURN [None]
